FAERS Safety Report 9785097 (Version 1)
Quarter: 2013Q4

REPORT INFORMATION
  Report Type: Spontaneous
  Country: US (occurrence: US)
  Receive Date: 20131227
  Receipt Date: 20131227
  Transmission Date: 20140711
  Serious: Yes (Other)
  Sender: FDA-Public Use
  Company Number: US-SUN PHARMACEUTICAL INDUSTRIES LTD-2013SUN05278

PATIENT
  Age: 51 Year
  Sex: Male

DRUGS (1)
  1. DOXORUBICIN HYDROCHLORIDE INJECTION 2MG/ML [Suspect]
     Indication: HEPATOCELLULAR CARCINOMA
     Dosage: 50 MG (MIXED WITH 300 MICRON LC BEADS)
     Route: 065

REACTIONS (1)
  - Duodenal ulcer [Unknown]
